FAERS Safety Report 8820100 (Version 3)
Quarter: 2012Q4

REPORT INFORMATION
  Report Type: 
  Country: FR (occurrence: FR)
  Receive Date: 20121001
  Receipt Date: 20121026
  Transmission Date: 20130627
  Serious: Yes (Disabling, Other)
  Sender: FDA-Public Use
  Company Number: FR-ABBOTT-12P-056-0986971-00

PATIENT
  Sex: Female
  Weight: 95 kg

DRUGS (14)
  1. HUMIRA [Suspect]
     Indication: PSORIASIS
     Dosage: 80 mg given
     Route: 058
     Dates: start: 20110415, end: 20110415
  2. HUMIRA [Suspect]
     Route: 058
     Dates: start: 20110422
  3. HEMIGOXINE [Concomitant]
     Indication: PULMONARY ARTERIAL HYPERTENSION
     Route: 048
     Dates: start: 2000
  4. DIFFU-K [Concomitant]
     Indication: ARRHYTHMIA SUPRAVENTRICULAR
     Route: 048
     Dates: start: 2000
  5. AMIODARONE [Concomitant]
     Indication: ARRHYTHMIA SUPRAVENTRICULAR
     Route: 048
     Dates: start: 2000
  6. LASILIX [Concomitant]
     Indication: HYPERTENSION
     Route: 048
     Dates: start: 2000
  7. FLUINDIONE [Concomitant]
     Indication: ARRHYTHMIA SUPRAVENTRICULAR
     Route: 048
     Dates: start: 2000
  8. SIMVASTATINE [Concomitant]
     Indication: HYPERCHOLESTEROLAEMIA
     Route: 048
     Dates: start: 2007
  9. SPIRONOLACTONE [Concomitant]
     Indication: PRODUCT USED FOR UNKNOWN INDICATION
     Route: 048
     Dates: start: 20111017
  10. LEVOTHYROX [Concomitant]
     Indication: HYPOTHYROIDISM
     Route: 048
     Dates: start: 2005
  11. LEVOTHYROX [Concomitant]
     Dates: start: 2006
  12. TOPALGIC [Concomitant]
     Indication: PAIN
     Route: 048
     Dates: start: 2002
  13. PARACETAMOL [Concomitant]
     Indication: HEADACHE
     Dosage: 1 to 2 daily as needed
     Route: 048
  14. ZOPICLONE [Concomitant]
     Indication: INSOMNIA
     Route: 048
     Dates: start: 2000

REACTIONS (1)
  - Tooth fracture [Not Recovered/Not Resolved]
